FAERS Safety Report 17269831 (Version 1)
Quarter: 2020Q1

REPORT INFORMATION
  Report Type: Spontaneous
  Country: US (occurrence: US)
  Receive Date: 20200114
  Receipt Date: 20200114
  Transmission Date: 20200409
  Serious: No
  Sender: FDA-Public Use
  Company Number: US-SA-2020SA010410

PATIENT
  Age: 81 Year
  Sex: Female

DRUGS (1)
  1. NASACORT ALLERGY 24HR [Suspect]
     Active Substance: TRIAMCINOLONE ACETONIDE
     Dosage: ONE SPRAY IN EACH NOSTRIL
     Route: 045

REACTIONS (6)
  - Vertigo [Unknown]
  - Ear disorder [Unknown]
  - Nasal inflammation [Unknown]
  - Sinusitis [Unknown]
  - Dizziness [Unknown]
  - Hypersensitivity [Unknown]
